FAERS Safety Report 7398986-9 (Version None)
Quarter: 2011Q2

REPORT INFORMATION
  Report Type: 
  Country: None (occurrence: None)
  Receive Date: 20110407
  Receipt Date: 20110329
  Transmission Date: 20111010
  Serious: Yes (Other)
  Sender: FDA-Public Use
  Company Number: MX-ELI_LILLY_AND_COMPANY-MX201103008595

PATIENT
  Age: 57 Year
  Sex: Female
  Weight: 51 kg

DRUGS (4)
  1. HUMALOG MIX 75/25 [Suspect]
     Dosage: 9 IU, OTHER
     Route: 058
     Dates: start: 20110303
  2. HUMALOG MIX 75/25 [Suspect]
     Indication: DIABETES MELLITUS
     Dosage: 18 IU, OTHER
     Dates: start: 20110303
  3. HOMEOPATHIC PREPARATION [Concomitant]
     Dosage: UNK
  4. TEGRETOL [Concomitant]
     Dosage: UNK

REACTIONS (4)
  - HYPERGLYCAEMIA [None]
  - SKIN DISORDER [None]
  - INJECTION SITE HAEMATOMA [None]
  - SYNCOPE [None]
